FAERS Safety Report 7525576-7 (Version None)
Quarter: 2011Q2

REPORT INFORMATION
  Report Type: 
  Country: None (occurrence: None)
  Receive Date: 20110606
  Receipt Date: 20110523
  Transmission Date: 20111010
  Serious: Yes (Other)
  Sender: FDA-Public Use
  Company Number: PHHY2011DE45956

PATIENT
  Age: 76 Year
  Sex: Male

DRUGS (1)
  1. ZOMETA [Suspect]
     Indication: PROSTATE CANCER METASTATIC
     Route: 042

REACTIONS (2)
  - EXPOSED BONE IN JAW [None]
  - OSTEONECROSIS OF JAW [None]
